FAERS Safety Report 18972615 (Version 1)
Quarter: 2021Q1

REPORT INFORMATION
  Report Type: Spontaneous
  Country: US (occurrence: US)
  Receive Date: 20210305
  Receipt Date: 20210305
  Transmission Date: 20210420
  Serious: No
  Sender: FDA-Public Use
  Company Number: US-SA-2021SA071906

PATIENT
  Sex: Male

DRUGS (1)
  1. DUPIXENT [Suspect]
     Active Substance: DUPILUMAB
     Indication: DERMATITIS ATOPIC

REACTIONS (7)
  - Condition aggravated [Unknown]
  - Dry skin [Unknown]
  - Pruritus [Unknown]
  - Sleep disorder [Unknown]
  - Therapeutic response shortened [Unknown]
  - Skin exfoliation [Unknown]
  - Skin fissures [Unknown]
